FAERS Safety Report 24184379 (Version 8)
Quarter: 2025Q1

REPORT INFORMATION
  Report Type: Report from Study
  Country: CA (occurrence: CA)
  Receive Date: 20240807
  Receipt Date: 20250304
  Transmission Date: 20250409
  Serious: Yes (Other)
  Sender: TAKEDA
  Company Number: CA-TAKEDA-2023TUS020832

PATIENT
  Age: 64 Year
  Sex: Female
  Weight: 62 kg

DRUGS (13)
  1. VEDOLIZUMAB [Suspect]
     Active Substance: VEDOLIZUMAB
     Indication: Colitis ulcerative
  2. VEDOLIZUMAB [Suspect]
     Active Substance: VEDOLIZUMAB
  3. VEDOLIZUMAB [Suspect]
     Active Substance: VEDOLIZUMAB
  4. VEDOLIZUMAB [Suspect]
     Active Substance: VEDOLIZUMAB
     Dosage: 300 MILLIGRAM, Q4WEEKS
     Dates: start: 20241022
  5. VEDOLIZUMAB [Suspect]
     Active Substance: VEDOLIZUMAB
     Dosage: 300 MILLIGRAM, Q4WEEKS
  6. VEDOLIZUMAB [Suspect]
     Active Substance: VEDOLIZUMAB
     Dosage: 300 MILLIGRAM, Q4WEEKS
     Dates: end: 20250206
  7. PANTOPRAZOLE SODIUM [Suspect]
     Active Substance: PANTOPRAZOLE SODIUM
     Indication: Dyspepsia
     Dosage: 40 MILLIGRAM, BID
  8. Cal D [Concomitant]
     Dosage: UNK UNK, QD
  9. PROMETRIUM [Concomitant]
     Active Substance: PROGESTERONE
     Dosage: 100 MILLIGRAM, QD
  10. ESTROGEL [Concomitant]
     Active Substance: ESTRADIOL
     Dosage: UNK UNK, QD
  11. PROLIA [Concomitant]
     Active Substance: DENOSUMAB
     Indication: Osteoporosis
  12. CALCIUM [Concomitant]
     Active Substance: CALCIUM
  13. PENTASA [Concomitant]
     Active Substance: MESALAMINE

REACTIONS (15)
  - Colitis ulcerative [Not Recovered/Not Resolved]
  - Intestinal obstruction [Unknown]
  - Haematochezia [Not Recovered/Not Resolved]
  - Gastric polyps [Not Recovered/Not Resolved]
  - Faeces soft [Recovering/Resolving]
  - Abdominal pain upper [Recovering/Resolving]
  - Large intestine polyp [Unknown]
  - Drug ineffective [Not Recovered/Not Resolved]
  - Irritable bowel syndrome [Recovered/Resolved]
  - Off label use [Unknown]
  - Hiatus hernia [Unknown]
  - Fatigue [Recovered/Resolved]
  - Diarrhoea [Not Recovered/Not Resolved]
  - Defaecation urgency [Not Recovered/Not Resolved]
  - Abdominal pain lower [Not Recovered/Not Resolved]

NARRATIVE: CASE EVENT DATE: 20241022
